FAERS Safety Report 22608629 (Version 3)
Quarter: 2023Q2

REPORT INFORMATION
  Report Type: Spontaneous
  Country: JP (occurrence: JP)
  Receive Date: 20230616
  Receipt Date: 20230627
  Transmission Date: 20230722
  Serious: Yes (Death, Life-Threatening, Hospitalization, Other)
  Sender: FDA-Public Use
  Company Number: JP-ASTELLAS-2022JP016591

PATIENT
  Age: 35 Year
  Sex: Male
  Weight: 105.9 kg

DRUGS (15)
  1. METHYLPREDNISOLONE [Suspect]
     Active Substance: METHYLPREDNISOLONE
     Indication: Engraftment syndrome
     Dosage: TAPERED DOWN
     Route: 065
  2. METHYLPREDNISOLONE [Suspect]
     Active Substance: METHYLPREDNISOLONE
     Dosage: 8 MG, QD
     Route: 065
  3. METHYLPREDNISOLONE [Suspect]
     Active Substance: METHYLPREDNISOLONE
     Dosage: 0.5 MG/KG, QD
     Route: 065
  4. METHYLPREDNISOLONE [Suspect]
     Active Substance: METHYLPREDNISOLONE
     Dosage: 0.2 MG/KG, FROM DAY 28-30
     Route: 065
  5. METHYLPREDNISOLONE [Suspect]
     Active Substance: METHYLPREDNISOLONE
     Dosage: 0.4 MG/KG
     Route: 065
  6. ANTI-THYMOCYTE GLOBULIN (RABBIT) NOS [Suspect]
     Active Substance: LAPINE T-LYMPHOCYTE IMMUNE GLOBULIN
     Indication: Prophylaxis against graft versus host disease
     Dosage: ON DAYS - 3 AND - 2
     Route: 065
  7. METHOTREXATE [Suspect]
     Active Substance: METHOTREXATE
     Indication: Prophylaxis against graft versus host disease
     Dosage: SHORT-TERM; ON DAY 3 AND DAY 6
     Route: 065
  8. METHOTREXATE [Suspect]
     Active Substance: METHOTREXATE
     Dosage: SHORT-TERM; ON DAY 1
     Route: 065
  9. TACROLIMUS [Suspect]
     Active Substance: TACROLIMUS
     Indication: Prophylaxis against graft versus host disease
     Dosage: 7.6 MG, BID, FINE ADJUSTMENTS WERE MADE TO KEEP THE TROUGH CONCENTRATION WITHIN 10-15NG/ML
     Route: 065
  10. TACROLIMUS [Suspect]
     Active Substance: TACROLIMUS
     Dosage: 0.03 MG/KG, FROM DAY 1-28; FINE ADJUSTMENTS WERE MADE TO KEEP THE TROUGH CONCENTRATION WITHIN 10-15N
     Route: 065
  11. TACROLIMUS [Suspect]
     Active Substance: TACROLIMUS
     Dosage: 0.03 MG/KG, DAY 54
     Route: 065
  12. CYCLOPHOSPHAMIDE [Suspect]
     Active Substance: CYCLOPHOSPHAMIDE
     Indication: Bone marrow conditioning regimen
     Dosage: 60 MG/KG, QD (ON DAYS -7 AND -6)
     Route: 042
  13. CYCLOPHOSPHAMIDE [Suspect]
     Active Substance: CYCLOPHOSPHAMIDE
     Indication: Bone marrow conditioning regimen
  14. URSODIOL [Concomitant]
     Active Substance: URSODIOL
     Indication: Prophylaxis
     Dosage: UNK
     Route: 065
  15. SULFAMETHOXAZOLE\TRIMETHOPRIM [Concomitant]
     Active Substance: SULFAMETHOXAZOLE\TRIMETHOPRIM
     Indication: Antifungal prophylaxis
     Dosage: 1 DF, QD (FROM DAY -7)
     Route: 048

REACTIONS (13)
  - Disseminated toxoplasmosis [Fatal]
  - Fatigue [Fatal]
  - Dyspnoea [Fatal]
  - Abdominal pain upper [Fatal]
  - Wheezing [Fatal]
  - Pyrexia [Fatal]
  - Inflammation [Fatal]
  - Venoocclusive liver disease [Fatal]
  - Hepatomegaly [Fatal]
  - Hepatic necrosis [Fatal]
  - Hyperferritinaemia [Fatal]
  - Bronchiolitis [Fatal]
  - Multiple organ dysfunction syndrome [Fatal]
